FAERS Safety Report 4713523-2 (Version None)
Quarter: 2005Q3

REPORT INFORMATION
  Report Type: 
  Country: None (occurrence: None)
  Receive Date: 20050713
  Receipt Date: 20050630
  Transmission Date: 20060218
  Serious: Yes (Other)
  Sender: FDA-Public Use
  Company Number: FR-JNJFOC-20050700386

PATIENT
  Age: 50 Year
  Sex: Female

DRUGS (2)
  1. RISPERDAL [Suspect]
     Indication: DELUSION
     Route: 049
  2. PROZAC [Concomitant]

REACTIONS (3)
  - DYSPEPSIA [None]
  - NEUTROPENIA [None]
  - WEIGHT DECREASED [None]
